FAERS Safety Report 8277096-2 (Version None)
Quarter: 2012Q2

REPORT INFORMATION
  Report Type: 
  Country: None (occurrence: None)
  Receive Date: 20120412
  Receipt Date: 20120331
  Transmission Date: 20120825
  Serious: Yes (Life-Threatening)
  Sender: FDA-Public Use
  Company Number: US-ROCHE-1056188

PATIENT
  Age: 58 Year
  Sex: Male

DRUGS (15)
  1. PROCHLORPERAZINE [Concomitant]
  2. FLUOROURACIL [Suspect]
     Indication: RECTAL CANCER
     Route: 042
     Dates: start: 20080625, end: 20081205
  3. DEXAMETHASONE [Suspect]
     Indication: NAUSEA
     Dates: start: 20080716
  4. ONDANSETRON [Concomitant]
  5. METFORMIN HCL [Concomitant]
  6. TYLENOL (CAPLET) [Concomitant]
  7. OXALIPLATIN [Suspect]
     Indication: RECTAL CANCER
     Route: 042
     Dates: start: 20080625, end: 20081205
  8. FLUOROURACIL [Suspect]
     Dosage: 2.4G/M2, CONTINUOUS INFUSION OVER 46 HOURS IMMEDIATELY FOLLOWING BOLUS 5-FU ON DAYS 1+ 2
     Route: 042
  9. FLUOROURACIL [Suspect]
     Dates: start: 20080201, end: 20080301
  10. CRESTOR [Concomitant]
  11. RAMIPRIL [Concomitant]
  12. AVASTIN [Suspect]
     Indication: RECTAL CANCER
     Route: 042
     Dates: start: 20080625, end: 20081205
  13. CALCIUM FOLINATE [Suspect]
     Indication: RECTAL CANCER
     Route: 042
     Dates: start: 20080625, end: 20081205
  14. ALLOPURINOL [Concomitant]
  15. HYDROCHLOROTHIAZIDE [Concomitant]

REACTIONS (1)
  - DEPRESSION [None]
